FAERS Safety Report 4531281-1 (Version None)
Quarter: 2004Q4

REPORT INFORMATION
  Report Type: 
  Country: None (occurrence: None)
  Receive Date: 20041206
  Receipt Date: 20041005
  Transmission Date: 20050328
  Serious: No
  Sender: FDA-Public Use
  Company Number: USA041080228

PATIENT
  Sex: Female

DRUGS (7)
  1. CYMBALTA [Suspect]
     Indication: ARTHRALGIA
     Dosage: 30 MG/ 1 DAY
     Dates: start: 20041002
  2. CYMBALTA [Suspect]
     Indication: BACK PAIN
     Dosage: 30 MG/ 1 DAY
     Dates: start: 20041002
  3. CYMBALTA [Suspect]
     Indication: DEPRESSION
     Dosage: 30 MG/ 1 DAY
     Dates: start: 20041002
  4. CYMBALTA [Suspect]
     Indication: FIBROMYALGIA
     Dosage: 30 MG/ 1 DAY
     Dates: start: 20041002
  5. CYMBALTA [Suspect]
     Indication: PAIN
     Dosage: 30 MG/ 1 DAY
     Dates: start: 20041002
  6. TRAZODONE HCL [Concomitant]
  7. NEURONTIN [Concomitant]

REACTIONS (1)
  - INSOMNIA [None]
